FAERS Safety Report 17371233 (Version 2)
Quarter: 2020Q3

REPORT INFORMATION
  Report Type: Spontaneous
  Country: LB (occurrence: LB)
  Receive Date: 20200205
  Receipt Date: 20200727
  Transmission Date: 20201102
  Serious: Yes (Hospitalization, Other)
  Sender: FDA-Public Use
  Company Number: LB-BRISTOL-MYERS SQUIBB COMPANY-BMS-2020-007190

PATIENT
  Age: 53 Year
  Sex: Female

DRUGS (1)
  1. NIVOLUMAB [Suspect]
     Active Substance: NIVOLUMAB
     Indication: LUNG NEOPLASM MALIGNANT
     Dosage: 240 MILLIGRAM, EVERY 15 DAYS
     Route: 065

REACTIONS (4)
  - Drug ineffective [Unknown]
  - Bronchitis [Unknown]
  - Off label use [Unknown]
  - Malignant neoplasm progression [Unknown]
